FAERS Safety Report 6521210-3 (Version None)
Quarter: 2009Q4

REPORT INFORMATION
  Report Type: 
  Country: None (occurrence: None)
  Receive Date: 20091222
  Receipt Date: 20091211
  Transmission Date: 20100525
  Serious: Yes (Hospitalization)
  Sender: FDA-Public Use
  Company Number: KV200900831

PATIENT
  Sex: Female

DRUGS (6)
  1. METOPROLOL SUCCINATE [Suspect]
     Indication: PALPITATIONS
     Dosage: 50 MG, QD, ORAL
     Route: 047
     Dates: end: 20090301
  2. SINGULAIR  /01362601/ (MONTELUKAST) [Concomitant]
  3. VERELAN [Concomitant]
  4. LIPITOR [Concomitant]
  5. CLARITIN  /00917501/ (LORATADINE) [Concomitant]
  6. ZYRTEC [Concomitant]

REACTIONS (6)
  - BLOOD CALCIUM DECREASED [None]
  - BLOOD COUNT ABNORMAL [None]
  - BLOOD MAGNESIUM DECREASED [None]
  - COUGH [None]
  - FLUID RETENTION [None]
  - VOMITING [None]
